FAERS Safety Report 5332358-3 (Version None)
Quarter: 2007Q2

REPORT INFORMATION
  Report Type: 
  Country: None (occurrence: None)
  Receive Date: 20070523
  Receipt Date: 20070518
  Transmission Date: 20071010
  Serious: Yes (Other)
  Sender: FDA-Public Use
  Company Number: A0652207A

PATIENT
  Age: 72 Year
  Sex: Female
  Weight: 91 kg

DRUGS (16)
  1. FLOLAN [Suspect]
     Route: 042
     Dates: start: 20060512
  2. CALCIUM CARBONATE [Concomitant]
     Dosage: 500MG PER DAY
     Route: 048
  3. ASCORBIC ACID [Concomitant]
     Dosage: 500MG PER DAY
     Route: 048
  4. ESTRADIOL [Concomitant]
     Dosage: .5MG PER DAY
     Route: 048
  5. MULTIPLE VITAMIN [Concomitant]
     Dosage: 1TAB PER DAY
     Route: 048
  6. NEXIUM [Concomitant]
     Dosage: 40MG PER DAY
     Route: 048
  7. KLOR-CON [Concomitant]
     Dosage: 10MEQ TWICE PER DAY
     Route: 048
  8. GLUCOTROL XL [Concomitant]
     Dosage: 10MG PER DAY
     Route: 048
  9. COZAAR [Concomitant]
     Dosage: 25MG PER DAY
     Route: 048
  10. DEMADEX [Concomitant]
     Dosage: 40MG IN THE MORNING
     Route: 048
  11. VOLTAREN [Concomitant]
     Dosage: 75MG PER DAY
     Route: 048
  12. ATENOLOL [Concomitant]
     Dosage: 50MG PER DAY
     Route: 048
  13. WARFARIN SODIUM [Concomitant]
     Dosage: 5MG PER DAY
     Route: 048
  14. OXYGEN [Concomitant]
  15. METOLAZONE [Concomitant]
     Dosage: 10MG PER DAY
     Route: 048
  16. ASPIRIN [Concomitant]
     Dosage: 81MG PER DAY
     Route: 048

REACTIONS (7)
  - ACTIVITIES OF DAILY LIVING IMPAIRED [None]
  - CONDITION AGGRAVATED [None]
  - DIARRHOEA [None]
  - DYSPNOEA [None]
  - FAILURE TO THRIVE [None]
  - HEADACHE [None]
  - PAIN IN JAW [None]
